FAERS Safety Report 5799472-X (Version None)
Quarter: 2008Q3

REPORT INFORMATION
  Report Type: 
  Country: None (occurrence: None)
  Receive Date: 20080701
  Receipt Date: 20080701
  Transmission Date: 20090109
  Serious: Yes (Hospitalization)
  Sender: FDA-Public Use
  Company Number: None

PATIENT
  Sex: Female
  Weight: 125.45 kg

DRUGS (3)
  1. CARBOPLATIN [Suspect]
     Dosage: 520 MG
  2. TAXOL [Suspect]
     Dosage: 270 MG
  3. GLUCOTROL XL [Concomitant]

REACTIONS (5)
  - ANAEMIA [None]
  - HYPOGLYCAEMIA [None]
  - NAUSEA [None]
  - THROMBOCYTOPENIA [None]
  - VOMITING [None]
